FAERS Safety Report 10030823 (Version 1)
Quarter: 2014Q1

REPORT INFORMATION
  Report Type: Spontaneous
  Country: US (occurrence: US)
  Receive Date: 20140323
  Receipt Date: 20140323
  Transmission Date: 20141002
  Serious: No
  Sender: FDA-Public Use
  Company Number: US-ALLERGAN-1313710US

PATIENT
  Sex: Female

DRUGS (1)
  1. LATISSE 0.03% [Suspect]
     Indication: MADAROSIS

REACTIONS (1)
  - Eyelids pruritus [Unknown]
